FAERS Safety Report 20630002 (Version 1)
Quarter: 2022Q1

REPORT INFORMATION
  Report Type: Other
  Country: CA (occurrence: CA)
  Receive Date: 20220324
  Receipt Date: 20220324
  Transmission Date: 20220423
  Serious: Yes (Other)
  Sender: FDA-Public Use
  Company Number: CA-CELLTRION INC.-2022CA003205

PATIENT

DRUGS (8)
  1. RITUXIMAB [Suspect]
     Active Substance: RITUXIMAB
     Indication: Interstitial lung disease
     Dosage: 1000 MG
     Route: 042
  2. ASPIRIN [Concomitant]
     Active Substance: ASPIRIN
     Dosage: 81 MILLIGRAM, 1 EVERY 1 DAY
     Route: 048
  3. ASPIRIN [Concomitant]
     Active Substance: ASPIRIN
     Dosage: 81 MILLIGRAM, 1 EVERY 1 DAY
     Route: 048
  4. ESCITALOPRAM OXALATE [Concomitant]
     Active Substance: ESCITALOPRAM OXALATE
     Dosage: 10 MILLIGRAM, 1 EVERY 1 DAY
     Route: 048
  5. MYCOPHENOLATE MOFETIL [Concomitant]
     Active Substance: MYCOPHENOLATE MOFETIL
     Dosage: 1 DOSAGE FORM, 2 EVERY 1 DAY
     Route: 048
  6. NIFEDIPINE [Concomitant]
     Active Substance: NIFEDIPINE
     Dosage: 30 MILLIGRAM, 1 EVERY 1 DAY
     Route: 065
  7. PANTOPRAZOLE SODIUM [Concomitant]
     Active Substance: PANTOPRAZOLE SODIUM
     Dosage: 40 MILLIGRAM, 1 EVERY 1 DAY
     Route: 048
  8. SILDENAFIL [Concomitant]
     Active Substance: SILDENAFIL
     Dosage: 1 DOSAGE FORM, 4 EVERY 1 DAY
     Route: 061

REACTIONS (5)
  - Feeling hot [Recovered/Resolved]
  - Nausea [Recovered/Resolved]
  - Pruritus [Recovered/Resolved]
  - Off label use [Recovered/Resolved]
  - Off label use [Unknown]
